FAERS Safety Report 8162313-X (Version None)
Quarter: 2012Q1

REPORT INFORMATION
  Report Type: 
  Country: None (occurrence: None)
  Receive Date: 20120224
  Receipt Date: 20110429
  Transmission Date: 20120608
  Serious: No
  Sender: FDA-Public Use
  Company Number: US-MYLANLABS-2011S1008999

PATIENT
  Age: 83 Year
  Sex: Female

DRUGS (3)
  1. CHLORDIAZEPOXIDE HYDROCHLORIDE [Suspect]
  2. VITAMIN D [Concomitant]
  3. HYDROCHLOROTHIAZIDE [Suspect]
     Indication: BLOOD PRESSURE INCREASED
     Route: 048

REACTIONS (5)
  - ANXIETY [None]
  - RESTLESSNESS [None]
  - VISION BLURRED [None]
  - DRY MOUTH [None]
  - NAUSEA [None]
